FAERS Safety Report 8544802-9 (Version None)
Quarter: 2012Q3

REPORT INFORMATION
  Report Type: 
  Country: None (occurrence: None)
  Receive Date: 20120727
  Receipt Date: 20120717
  Transmission Date: 20120928
  Serious: Yes (Other)
  Sender: FDA-Public Use
  Company Number: US-ABBOTT-12P-163-0957594-00

PATIENT
  Sex: Female

DRUGS (5)
  1. PREDNISONE [Suspect]
     Indication: PRODUCT USED FOR UNKNOWN INDICATION
  2. ENBREL [Suspect]
     Dates: start: 20050526
  3. HUMIRA [Suspect]
     Indication: PRODUCT USED FOR UNKNOWN INDICATION
     Dates: end: 20110901
  4. METHOTREXATE [Suspect]
     Indication: PRODUCT USED FOR UNKNOWN INDICATION
     Dates: start: 20120201
  5. ENBREL [Suspect]
     Indication: PSORIASIS
     Dates: start: 20120508

REACTIONS (7)
  - SWELLING [None]
  - SWELLING FACE [None]
  - LUPUS-LIKE SYNDROME [None]
  - RASH MACULAR [None]
  - MOUTH ULCERATION [None]
  - WEIGHT INCREASED [None]
  - ANXIETY [None]
